FAERS Safety Report 14109228 (Version 1)
Quarter: 2017Q4

REPORT INFORMATION
  Report Type: Spontaneous
  Country: GB (occurrence: GB)
  Receive Date: 20171019
  Receipt Date: 20171019
  Transmission Date: 20180321
  Serious: Yes (Life-Threatening, Hospitalization, Other)
  Sender: FDA-Public Use
  Company Number: GB-TEVA-816143ACC

PATIENT
  Age: 61 Year
  Sex: Male
  Weight: 80 kg

DRUGS (4)
  1. GENERICS UK ESOMEPRAZOLE GASTRO-RESISTANT [Suspect]
     Active Substance: ESOMEPRAZOLE
     Indication: GASTROOESOPHAGEAL REFLUX DISEASE
     Route: 048
  2. ASPIRIN. [Concomitant]
     Active Substance: ASPIRIN
  3. LEVOTHYROXINE SODIUM ANHYDROUS [Suspect]
     Active Substance: LEVOTHYROXINE SODIUM ANHYDROUS
     Indication: HYPOTHYROIDISM
     Route: 048
  4. CRESTOR [Concomitant]
     Active Substance: ROSUVASTATIN CALCIUM

REACTIONS (4)
  - Malaise [Recovering/Resolving]
  - Supraventricular tachycardia [Unknown]
  - Feeling abnormal [Recovering/Resolving]
  - Hypertension [Recovering/Resolving]
